FAERS Safety Report 22351530 (Version 1)
Quarter: 2023Q2

REPORT INFORMATION
  Report Type: Spontaneous
  Country: US (occurrence: None)
  Receive Date: 20230522
  Receipt Date: 20230522
  Transmission Date: 20230722
  Serious: Yes (Disabling, Other)
  Sender: FDA-Public Use
  Company Number: None

PATIENT
  Age: 41 Year
  Sex: Female
  Weight: 74.84 kg

DRUGS (4)
  1. TECFIDERA [Suspect]
     Active Substance: DIMETHYL FUMARATE
     Indication: Multiple sclerosis
     Dosage: OTHER QUANTITY : 60;?FREQUENCY : TWICE A DAY;?
     Route: 054
     Dates: start: 20131007, end: 20180220
  2. AUBAGIO [Concomitant]
     Active Substance: TERIFLUNOMIDE
  3. VITAMINS [Concomitant]
     Active Substance: VITAMINS
  4. FERROUS SULFATE [Concomitant]
     Active Substance: FERROUS SULFATE

REACTIONS (3)
  - Multiple sclerosis relapse [None]
  - Product substitution issue [None]
  - Influenza like illness [None]

NARRATIVE: CASE EVENT DATE: 20160830
